FAERS Safety Report 7015839-6 (Version None)
Quarter: 2010Q3

REPORT INFORMATION
  Report Type: 
  Country: None (occurrence: None)
  Receive Date: 20100927
  Receipt Date: 20100714
  Transmission Date: 20110219
  Serious: No
  Sender: FDA-Public Use
  Company Number: US-ASTRAZENECA-2010SE32816

PATIENT
  Age: 63 Year
  Sex: Female

DRUGS (1)
  1. ARIMIDEX [Suspect]
     Indication: BREAST CANCER
     Route: 048

REACTIONS (7)
  - ARTHRALGIA [None]
  - DEPRESSION [None]
  - DRUG DOSE OMISSION [None]
  - FEELING ABNORMAL [None]
  - FLATULENCE [None]
  - HOT FLUSH [None]
  - WRONG TECHNIQUE IN DRUG USAGE PROCESS [None]
